FAERS Safety Report 19775785 (Version 1)
Quarter: 2021Q3

REPORT INFORMATION
  Report Type: Spontaneous
  Country: US (occurrence: US)
  Receive Date: 20210901
  Receipt Date: 20210901
  Transmission Date: 20211014
  Serious: Yes (Other)
  Sender: FDA-Public Use
  Company Number: US-GLAXOSMITHKLINE-US2021GSK186182

PATIENT
  Sex: Male

DRUGS (7)
  1. ZANTAC [Suspect]
     Active Substance: RANITIDINE HYDROCHLORIDE
     Indication: GASTROINTESTINAL HAEMORRHAGE
     Dosage: UNK UNK, QD
     Route: 065
     Dates: start: 201001, end: 201501
  2. RANITIDINE. [Suspect]
     Active Substance: RANITIDINE
     Dosage: UNK
  3. ZANTAC [Suspect]
     Active Substance: RANITIDINE HYDROCHLORIDE
     Indication: GASTROINTESTINAL HAEMORRHAGE
     Dosage: 300 MG PRESCRIPTION
     Route: 065
     Dates: start: 201001, end: 201501
  4. RANITIDINE. [Suspect]
     Active Substance: RANITIDINE
     Indication: GASTROINTESTINAL HAEMORRHAGE
     Dosage: UNK, QD
     Route: 065
     Dates: start: 201005, end: 201508
  5. RANITIDINE. [Suspect]
     Active Substance: RANITIDINE
     Indication: GASTROINTESTINAL HAEMORRHAGE
     Dosage: UNK, QD
     Route: 065
     Dates: start: 201005, end: 201508
  6. ZANTAC [Suspect]
     Active Substance: RANITIDINE HYDROCHLORIDE
     Dosage: UNK UNK, QD
     Route: 065
     Dates: start: 201001, end: 201501
  7. RANITIDINE. [Suspect]
     Active Substance: RANITIDINE
     Dosage: UNK

REACTIONS (1)
  - Lung neoplasm malignant [Unknown]
